FAERS Safety Report 18704321 (Version 2)
Quarter: 2021Q2

REPORT INFORMATION
  Report Type: Other
  Country: US (occurrence: US)
  Receive Date: 20210105
  Receipt Date: 20210419
  Transmission Date: 20210717
  Serious: Yes (Hospitalization, Other)
  Sender: FDA-Public Use
  Company Number: US-AMAG PHARMACEUTICALS, INC.-AMAG202004405

PATIENT
  Age: 31 Year
  Sex: Female
  Weight: 98.06 kg

DRUGS (1)
  1. MAKENA [Suspect]
     Active Substance: HYDROXYPROGESTERONE CAPROATE
     Indication: PREMATURE DELIVERY
     Route: 058
     Dates: end: 20201211

REACTIONS (2)
  - Premature delivery [Recovered/Resolved]
  - Pre-eclampsia [Unknown]

NARRATIVE: CASE EVENT DATE: 202012
